FAERS Safety Report 9385974 (Version 2)
Quarter: 2013Q3

REPORT INFORMATION
  Report Type: Report from Study
  Country: DE (occurrence: DE)
  Receive Date: 20130705
  Receipt Date: 20130906
  Transmission Date: 20140515
  Serious: Yes (Other)
  Sender: FDA-Public Use
  Company Number: DE-BAXTER-2013BAX025307

PATIENT
  Age: 44 Year
  Sex: 0
  Weight: 98 kg

DRUGS (2)
  1. ADVATE 2000 I.E. [Suspect]
     Indication: FACTOR VIII DEFICIENCY
     Route: 042
     Dates: start: 20130206, end: 20130506
  2. ADVATE 2000 I.E. [Suspect]
     Indication: PROPHYLAXIS

REACTIONS (1)
  - Complex partial seizures [Recovered/Resolved]
